FAERS Safety Report 25397385 (Version 1)
Quarter: 2025Q2

REPORT INFORMATION
  Report Type: Spontaneous
  Country: US (occurrence: US)
  Receive Date: 20250604
  Receipt Date: 20250604
  Transmission Date: 20250716
  Serious: No
  Sender: GALPHARM INTERNATIONAL
  Company Number: US-PERRIGO-24US006181

PATIENT
  Age: 74 Year
  Sex: Female
  Weight: 56.689 kg

DRUGS (5)
  1. MINOXIDIL [Suspect]
     Active Substance: MINOXIDIL
     Indication: Alopecia
     Route: 061
     Dates: start: 20240620, end: 20240622
  2. ESTRADIOL [Concomitant]
     Active Substance: ESTRADIOL
     Indication: Hot flush
     Route: 065
     Dates: start: 2014
  3. PREMARIN [Concomitant]
     Active Substance: ESTROGENS, CONJUGATED
     Indication: Hot flush
     Route: 061
     Dates: start: 2014
  4. PREMARIN [Concomitant]
     Active Substance: ESTROGENS, CONJUGATED
     Route: 048
     Dates: start: 2014
  5. ATORVASTATIN [Concomitant]
     Active Substance: ATORVASTATIN
     Indication: Cardiac disorder
     Route: 065
     Dates: start: 2019

REACTIONS (3)
  - Dysuria [Recovered/Resolved]
  - Peripheral swelling [Recovered/Resolved]
  - Weight increased [Recovered/Resolved]

NARRATIVE: CASE EVENT DATE: 20240620
